FAERS Safety Report 20507256 (Version 1)
Quarter: 2022Q1

REPORT INFORMATION
  Report Type: Spontaneous
  Country: GB (occurrence: GB)
  Receive Date: 20220223
  Receipt Date: 20220223
  Transmission Date: 20220424
  Serious: Yes (Other)
  Sender: FDA-Public Use
  Company Number: GB-GILEAD-2022-0570292

PATIENT
  Sex: Female

DRUGS (2)
  1. DESCOVY [Suspect]
     Active Substance: EMTRICITABINE\TENOFOVIR ALAFENAMIDE FUMARATE
     Indication: HIV infection
     Dosage: 1 DOSAGE FORM (200/25 MG) HIGH DOSE, QD
     Route: 048
  2. DOLUTEGRAVIR [DOLUTEGRAVIR SODIUM] [Concomitant]

REACTIONS (2)
  - Hypophagia [Unknown]
  - Circumstance or information capable of leading to medication error [Not Recovered/Not Resolved]

NARRATIVE: CASE EVENT DATE: 20220101
